FAERS Safety Report 5509726-X (Version None)
Quarter: 2007Q4

REPORT INFORMATION
  Report Type: 
  Country: None (occurrence: None)
  Receive Date: 20071107
  Receipt Date: 20071107
  Transmission Date: 20080405
  Serious: No
  Sender: FDA-Public Use
  Company Number: None

PATIENT
  Age: 56 Year
  Sex: Female
  Weight: 109 kg

DRUGS (2)
  1. DEPODUR [Suspect]
     Indication: ANAESTHESIA
     Dosage: DEPODUR 10 MG X1 EPIDURAL
     Route: 008
     Dates: start: 20070220
  2. DEPODUR [Suspect]
     Indication: PREOPERATIVE CARE
     Dosage: DEPODUR 10 MG X1 EPIDURAL
     Route: 008
     Dates: start: 20070220

REACTIONS (3)
  - BLOOD PRESSURE DECREASED [None]
  - NO THERAPEUTIC RESPONSE [None]
  - RESPIRATORY RATE DECREASED [None]
